FAERS Safety Report 8581536-9 (Version None)
Quarter: 2012Q3

REPORT INFORMATION
  Report Type: 
  Country: None (occurrence: None)
  Receive Date: 20120809
  Receipt Date: 20120803
  Transmission Date: 20120928
  Serious: No
  Sender: FDA-Public Use
  Company Number: US-B.I. PHARMACEUTICALS,INC./RIDGEFIELD-2012-BP-17527BP

PATIENT
  Sex: Male

DRUGS (5)
  1. PRILOSEC [Concomitant]
     Indication: BARRETT'S OESOPHAGUS
  2. CALCIUM CARBONATE [Concomitant]
     Indication: DYSPEPSIA
     Route: 048
  3. ZANTAC [Suspect]
  4. TAMSULOSIN HCL [Concomitant]
     Indication: PROSTATIC DISORDER
  5. ZANTAC [Suspect]
     Indication: DYSPEPSIA
     Dosage: 75 MG
     Route: 048
     Dates: start: 20120731

REACTIONS (1)
  - FAECES HARD [None]
